FAERS Safety Report 20926416 (Version 1)
Quarter: 2022Q2

REPORT INFORMATION
  Report Type: Spontaneous
  Country: DE (occurrence: DE)
  Receive Date: 20220607
  Receipt Date: 20220607
  Transmission Date: 20220721
  Serious: Yes (Other)
  Sender: FDA-Public Use
  Company Number: DE-BBM-202201242

PATIENT
  Age: 9 Week
  Sex: Male

DRUGS (2)
  1. DEXMEDETOMIDINE [Suspect]
     Active Substance: DEXMEDETOMIDINE
     Indication: Magnetic resonance imaging head abnormal
     Dosage: UNK, UG?KG?1 H?1
  2. DEXMEDETOMIDINE [Suspect]
     Active Substance: DEXMEDETOMIDINE
     Indication: Sedative therapy
     Dosage: UNK

REACTIONS (2)
  - Bradycardia [Recovered/Resolved]
  - Off label use [Recovered/Resolved]
